FAERS Safety Report 18469562 (Version 3)
Quarter: 2021Q1

REPORT INFORMATION
  Report Type: Spontaneous
  Country: US (occurrence: US)
  Receive Date: 20201105
  Receipt Date: 20210106
  Transmission Date: 20210419
  Serious: No
  Sender: FDA-Public Use
  Company Number: US-VIFOR (INTERNATIONAL) INC.-VIT-2020-10455

PATIENT
  Sex: Male
  Weight: 64.92 kg

DRUGS (12)
  1. VELTASSA [Suspect]
     Active Substance: PATIROMER
  2. ASPIRIN. [Concomitant]
     Active Substance: ASPIRIN
     Route: 048
  3. MAG 64 [Concomitant]
     Dosage: DELAYED RELEASE {DR/EC)
     Route: 048
     Dates: start: 20200713
  4. VELTASSA [Suspect]
     Active Substance: PATIROMER
     Indication: HYPERKALAEMIA
     Route: 048
     Dates: start: 20201008
  5. CITALOPRAM [Concomitant]
     Active Substance: CITALOPRAM HYDROBROMIDE
     Route: 048
     Dates: start: 20160405
  6. DULERA [Concomitant]
     Active Substance: FORMOTEROL FUMARATE DIHYDRATE\MOMETASONE FUROATE
     Dosage: 200?5 MCG/ ACTUATION HFA AEROSOL INHALER. INHALE 1 PUFF USING INHALER TWICE A DAY.
     Dates: start: 20151204
  7. MUCINEX [Concomitant]
     Active Substance: GUAIFENESIN
     Dosage: EXTENDED RELEASE 12HR TABLET
     Route: 048
  8. PROVENTIL HFA [Concomitant]
     Active Substance: ALBUTEROL SULFATE
     Dosage: 90 MCG/ACTUATION HFA AEROSOL INHALER.
     Route: 048
     Dates: start: 20160405
  9. VITAMIN D3 [Concomitant]
     Active Substance: CHOLECALCIFEROL
     Dosage: 25 MCG (1,000 UNIT) CAPSULE
     Route: 048
  10. ATORVASTATIN [Concomitant]
     Active Substance: ATORVASTATIN
     Route: 048
     Dates: start: 20151204
  11. METFORMIN [Concomitant]
     Active Substance: METFORMIN HYDROCHLORIDE
     Dates: start: 20151204
  12. SPIRIVA [Concomitant]
     Active Substance: TIOTROPIUM BROMIDE MONOHYDRATE
     Dosage: W/INHALATION DEVICE. CONTENTS OF ONE CAPSULE, ONCE?DAILY (OD), USING HANDIHALER DEVICE. DO NOT SWALL
     Dates: start: 20150903

REACTIONS (3)
  - Therapeutic procedure [Recovering/Resolving]
  - Weight decreased [Recovering/Resolving]
  - Constipation [Unknown]

NARRATIVE: CASE EVENT DATE: 2020
